FAERS Safety Report 16047105 (Version 2)
Quarter: 2019Q1

REPORT INFORMATION
  Report Type: Spontaneous
  Country: US (occurrence: US)
  Receive Date: 20190307
  Receipt Date: 20190326
  Transmission Date: 20190418
  Serious: No
  Sender: FDA-Public Use
  Company Number: US-TAKEDA-2019TUS011301

PATIENT
  Age: 47 Year
  Sex: Male
  Weight: 103.4 kg

DRUGS (2)
  1. VITAMIN E                          /00110501/ [Concomitant]
     Active Substance: TOCOPHEROL
     Indication: HEPATIC STEATOSIS
     Dosage: 800 INTERNATIONAL UNIT, QD
     Dates: start: 2016
  2. ENTYVIO [Suspect]
     Active Substance: VEDOLIZUMAB
     Indication: COLITIS ULCERATIVE
     Dosage: 300 MILLIGRAM
     Route: 042
     Dates: start: 20181106, end: 20190222

REACTIONS (6)
  - Serum sickness-like reaction [Recovering/Resolving]
  - Burning sensation [Unknown]
  - Rash [Recovering/Resolving]
  - Erythema [Unknown]
  - Dizziness postural [Unknown]
  - Pain [Unknown]

NARRATIVE: CASE EVENT DATE: 20190219
